FAERS Safety Report 5520066-5 (Version None)
Quarter: 2007Q4

REPORT INFORMATION
  Report Type: 
  Country: None (occurrence: None)
  Receive Date: 20071116
  Receipt Date: 20071107
  Transmission Date: 20080405
  Serious: Yes (Hospitalization)
  Sender: FDA-Public Use
  Company Number: BE-ABBOTT-07P-013-0424010-00

PATIENT
  Sex: Male

DRUGS (8)
  1. KALETRA [Suspect]
     Indication: HIV INFECTION
     Dates: start: 20070508, end: 20070824
  2. KALETRA [Suspect]
     Dates: start: 20070911
  3. RIFAMPICIN [Suspect]
     Indication: DRUG USE FOR UNKNOWN INDICATION
  4. ABACAVIR SULFATE W/LAMIVUDINE [Concomitant]
     Indication: HIV INFECTION
  5. LAMIVUDINE + ZIDOVUDINE [Concomitant]
     Indication: HIV INFECTION
  6. SAQUINAVIR MESILATE [Concomitant]
     Indication: HIV INFECTION
  7. ZIDOVUDINE [Concomitant]
     Indication: HIV INFECTION
  8. PANTOPRAZOLE SODIUM [Concomitant]
     Indication: DUODENAL ULCER

REACTIONS (2)
  - FLUID OVERLOAD [None]
  - RENAL FAILURE [None]
